FAERS Safety Report 7658957-1 (Version None)
Quarter: 2011Q3

REPORT INFORMATION
  Report Type: 
  Country: None (occurrence: None)
  Receive Date: 20110805
  Receipt Date: 20110801
  Transmission Date: 20111222
  Serious: Yes (Hospitalization)
  Sender: FDA-Public Use
  Company Number: US-AMGEN-USACT2011038861

PATIENT
  Age: 66 Year
  Sex: Male

DRUGS (3)
  1. TAXOTERE [Concomitant]
     Dosage: UNK
     Dates: start: 20100101
  2. PANITUMUMAB [Suspect]
     Indication: HEAD AND NECK CANCER
     Dosage: 619 MG, Q3WK
     Route: 042
     Dates: start: 20110405
  3. CISPLATIN [Concomitant]
     Dosage: UNK
     Dates: start: 20100101

REACTIONS (4)
  - CONFUSIONAL STATE [None]
  - DIZZINESS [None]
  - MUSCULAR WEAKNESS [None]
  - ATAXIA [None]
